FAERS Safety Report 26109461 (Version 1)
Quarter: 2025Q4

REPORT INFORMATION
  Report Type: Report from Study
  Country: EU (occurrence: EU)
  Receive Date: 20251201
  Receipt Date: 20251201
  Transmission Date: 20260118
  Serious: Yes (Other)
  Sender: MYLAN
  Company Number: EU-MYLANLABS-2025M1100644

PATIENT
  Sex: Female

DRUGS (4)
  1. GLATIRAMER [Suspect]
     Active Substance: GLATIRAMER
     Indication: Multiple sclerosis
     Dosage: UNK, 3XW (40 MILLIGRAM PER MILLILITRE, 3XW)
     Dates: start: 20180311
  2. GLATIRAMER [Suspect]
     Active Substance: GLATIRAMER
     Dosage: UNK, 3XW (40 MILLIGRAM PER MILLILITRE, 3XW)
     Route: 058
     Dates: start: 20180311
  3. GLATIRAMER [Suspect]
     Active Substance: GLATIRAMER
     Dosage: UNK, 3XW (40 MILLIGRAM PER MILLILITRE, 3XW)
     Route: 058
     Dates: start: 20180311
  4. GLATIRAMER [Suspect]
     Active Substance: GLATIRAMER
     Dosage: UNK, 3XW (40 MILLIGRAM PER MILLILITRE, 3XW)
     Dates: start: 20180311

REACTIONS (2)
  - Multiple sclerosis relapse [Unknown]
  - Drug ineffective [Unknown]

NARRATIVE: CASE EVENT DATE: 20250101
